FAERS Safety Report 9774181 (Version 1)
Quarter: 2013Q4

REPORT INFORMATION
  Report Type: Spontaneous
  Country: CA (occurrence: CA)
  Receive Date: 20131220
  Receipt Date: 20131220
  Transmission Date: 20140711
  Serious: Yes (Hospitalization)
  Sender: FDA-Public Use
  Company Number: CA-AMGEN-CANSP2013088985

PATIENT
  Age: 56 Year
  Sex: Male

DRUGS (8)
  1. ENBREL [Suspect]
     Indication: RHEUMATOID ARTHRITIS
     Dosage: 50 MG, UNK
     Route: 065
     Dates: start: 20131025
  2. CELEBREX [Concomitant]
     Dosage: UNK
  3. PREDNISONE [Concomitant]
     Dosage: UNK
  4. EFFEXOR [Concomitant]
     Dosage: UNK
  5. CALCIUM [Concomitant]
     Dosage: UNK
  6. DILTIAZEM TEVA [Concomitant]
     Dosage: UNK
  7. ESOMEPRAZOLE [Concomitant]
     Dosage: UNK
  8. DELATESTRYL [Concomitant]
     Dosage: UNK

REACTIONS (1)
  - Appendix disorder [Recovered/Resolved]
